FAERS Safety Report 5026331-2 (Version None)
Quarter: 2006Q2

REPORT INFORMATION
  Report Type: 
  Country: None (occurrence: None)
  Receive Date: 20060426
  Receipt Date: 20060131
  Transmission Date: 20061013
  Serious: Yes (Other)
  Sender: FDA-Public Use
  Company Number: 2006016700

PATIENT
  Age: 55 Year
  Sex: Male
  Weight: 115.2136 kg

DRUGS (5)
  1. LYRICA [Suspect]
     Indication: HEADACHE
     Dosage: 150 MG (75 MG,2 IN 1 D)
     Dates: start: 20060111
  2. TEMAZEPAM [Concomitant]
  3. ASTELIN [Concomitant]
  4. LOTREL [Concomitant]
  5. INDOMETHACIN [Concomitant]

REACTIONS (2)
  - INCREASED APPETITE [None]
  - WEIGHT INCREASED [None]
